FAERS Safety Report 5652372-8 (Version None)
Quarter: 2008Q1

REPORT INFORMATION
  Report Type: 
  Country: None (occurrence: None)
  Receive Date: 20080305
  Receipt Date: 20080305
  Transmission Date: 20080703
  Serious: No
  Sender: FDA-Public Use
  Company Number: None

PATIENT
  Age: 33 Year
  Sex: Female
  Weight: 69.4003 kg

DRUGS (5)
  1. KENALOG [Suspect]
     Indication: PATELLOFEMORAL PAIN SYNDROME
     Dosage: 40 MG
     Dates: start: 20080206
  2. LIDOCAINE [Suspect]
     Dosage: 40 MG
     Dates: start: 20080206
  3. ACETAMINOPHEN [Concomitant]
  4. SERTRALINE [Concomitant]
  5. DICLOFENAC [Concomitant]

REACTIONS (1)
  - BURNING SENSATION [None]
